FAERS Safety Report 14101658 (Version 2)
Quarter: 2017Q4

REPORT INFORMATION
  Report Type: Report from Study
  Country: US (occurrence: US)
  Receive Date: 20171018
  Receipt Date: 20171213
  Transmission Date: 20180321
  Serious: Yes (Hospitalization, Other)
  Sender: FDA-Public Use
  Company Number: US-TEVA-815174USA

PATIENT
  Age: 10 Year
  Sex: Female
  Weight: 35.9 kg

DRUGS (19)
  1. ONDANSETRON [Concomitant]
     Active Substance: ONDANSETRON
     Dates: start: 20170201
  2. INCB018424 [Suspect]
     Active Substance: RUXOLITINIB
     Dosage: 100 MILLIGRAM DAILY;
     Route: 048
     Dates: start: 20170815, end: 20170828
  3. VINCRISTINE [Suspect]
     Active Substance: VINCRISTINE
     Route: 042
     Dates: start: 20170823
  4. VINCRISTINE [Suspect]
     Active Substance: VINCRISTINE
     Indication: ACUTE LYMPHOCYTIC LEUKAEMIA
     Dosage: ONCE
     Route: 042
     Dates: start: 20170220
  5. CYTARABINE. [Suspect]
     Active Substance: CYTARABINE
     Dosage: 92 MILLIGRAM DAILY;
     Route: 042
     Dates: start: 20170412
  6. PEGASPARGASE [Suspect]
     Active Substance: PEGASPARGASE
     Indication: ACUTE LYMPHOCYTIC LEUKAEMIA
     Dosage: ONCE
     Route: 042
     Dates: start: 20170117
  7. MERCAPTOPURINE. [Suspect]
     Active Substance: MERCAPTOPURINE
     Dosage: 25 MILLIGRAM DAILY;
     Dates: start: 20170515
  8. DOXORUBICIN [Suspect]
     Active Substance: DOXORUBICIN
     Indication: ACUTE LYMPHOCYTIC LEUKAEMIA
     Dosage: 32MG ONCE
     Route: 042
     Dates: start: 20170823
  9. CYTARABINE. [Suspect]
     Active Substance: CYTARABINE
     Indication: ACUTE LYMPHOCYTIC LEUKAEMIA
     Dosage: 92 MILLIGRAM DAILY;
     Route: 042
     Dates: start: 20170113
  10. CAFFEINE CITRATE. [Concomitant]
     Active Substance: CAFFEINE CITRATE
     Dates: start: 20170217
  11. BACTRIM [Concomitant]
     Active Substance: SULFAMETHOXAZOLE\TRIMETHOPRIM
     Dates: start: 20170220
  12. INCB018424 [Suspect]
     Active Substance: RUXOLITINIB
     Dosage: 100 MILLIGRAM DAILY;
     Route: 048
     Dates: start: 20170913
  13. METHOTREXATE. [Suspect]
     Active Substance: METHOTREXATE
     Dosage: 15MG ONCE
     Route: 037
     Dates: start: 20170808
  14. DEXAMETHASONE. [Suspect]
     Active Substance: DEXAMETHASONE
     Indication: ACUTE LYMPHOCYTIC LEUKAEMIA
     Dosage: 13 MILLIGRAM DAILY;
     Route: 048
     Dates: start: 20170823
  15. CAFFEINE. [Concomitant]
     Active Substance: CAFFEINE
     Dates: start: 20170201
  16. INCB018424 [Suspect]
     Active Substance: RUXOLITINIB
     Indication: ACUTE LYMPHOCYTIC LEUKAEMIA
     Dosage: 50 MILLIGRAM DAILY;
     Route: 048
     Dates: start: 20170220
  17. PEGASPARGASE [Suspect]
     Active Substance: PEGASPARGASE
     Dosage: 3150 UNITS
     Route: 042
     Dates: start: 20170811
  18. MERCAPTOPURINE. [Suspect]
     Active Substance: MERCAPTOPURINE
     Indication: ACUTE LYMPHOCYTIC LEUKAEMIA
     Dosage: 25 MG MONDAY-FRIDAY, 50 MG SATURDAY AND SUNDAY
     Dates: start: 20170424
  19. METHOTREXATE. [Suspect]
     Active Substance: METHOTREXATE
     Indication: ACUTE LYMPHOCYTIC LEUKAEMIA
     Dosage: 15MG ONCE
     Route: 042
     Dates: start: 20170713

REACTIONS (1)
  - Febrile neutropenia [Unknown]

NARRATIVE: CASE EVENT DATE: 20170901
